FAERS Safety Report 8339293-7 (Version None)
Quarter: 2012Q2

REPORT INFORMATION
  Report Type: 
  Country: None (occurrence: None)
  Receive Date: 20120507
  Receipt Date: 20120504
  Transmission Date: 20120825
  Serious: Yes (Other)
  Sender: FDA-Public Use
  Company Number: US-BAYER-2012-020561

PATIENT
  Age: 48 Year
  Sex: Female

DRUGS (3)
  1. BETASERON [Suspect]
     Dosage: UNK
     Dates: start: 20100928, end: 20111201
  2. BETASERON [Suspect]
     Indication: MULTIPLE SCLEROSIS
     Dosage: UNK
     Dates: start: 20081103, end: 20090105
  3. BETASERON [Suspect]
     Dosage: UNK
     Dates: start: 20090203, end: 20091226

REACTIONS (7)
  - THYROID CANCER [None]
  - VERTIGO [None]
  - DIZZINESS [None]
  - TINNITUS [None]
  - HEADACHE [None]
  - PARAESTHESIA [None]
  - THYROID MASS [None]
